FAERS Safety Report 9778517 (Version 1)
Quarter: 2013Q4

REPORT INFORMATION
  Report Type: Spontaneous
  Country: US (occurrence: None)
  Receive Date: 20131220
  Receipt Date: 20131220
  Transmission Date: 20140711
  Serious: Yes (Hospitalization)
  Sender: FDA-Public Use
  Company Number: None

PATIENT
  Age: 43 Year
  Sex: Male
  Weight: 72.7 kg

DRUGS (1)
  1. AZATHIOPRINE [Suspect]
     Indication: COLITIS ULCERATIVE
     Route: 048
     Dates: start: 20130730, end: 20130827

REACTIONS (1)
  - Pancreatitis [None]
